FAERS Safety Report 23196270 (Version 1)
Quarter: 2023Q4

REPORT INFORMATION
  Report Type: Spontaneous
  Country: US (occurrence: US)
  Receive Date: 20231117
  Receipt Date: 20231117
  Transmission Date: 20240110
  Serious: No
  Sender: FDA-Public Use
  Company Number: US-BAYER-2023A163907

PATIENT
  Age: 10 Year
  Sex: Male

DRUGS (1)
  1. CLARITIN [Suspect]
     Active Substance: LORATADINE
     Dosage: 4 CHEWS IN LESS THAN 24 HOURS
     Route: 065

REACTIONS (1)
  - Inappropriate schedule of product administration [Not Recovered/Not Resolved]
